FAERS Safety Report 6869199-1 (Version None)
Quarter: 2010Q3

REPORT INFORMATION
  Report Type: 
  Country: None (occurrence: None)
  Receive Date: 20100722
  Receipt Date: 20080930
  Transmission Date: 20110219
  Serious: Yes (Other)
  Sender: FDA-Public Use
  Company Number: US-PFIZER INC-2008053899

PATIENT
  Sex: Female
  Weight: 113.4 kg

DRUGS (15)
  1. CHANTIX [Suspect]
     Indication: SMOKING CESSATION THERAPY
     Route: 048
     Dates: start: 20080101
  2. ZONEGRAN [Concomitant]
     Indication: CONVULSION
  3. KEPPRA [Concomitant]
  4. LISINOPRIL [Concomitant]
  5. PIROXICAM [Concomitant]
  6. GEODON [Concomitant]
  7. VITAMINS [Concomitant]
  8. ZOLPIDEM [Concomitant]
     Indication: SLEEP DISORDER
  9. FLONASE [Concomitant]
  10. FLOVENT [Concomitant]
  11. CODEINE [Concomitant]
  12. COMBIVENT [Concomitant]
  13. DRUG, UNSPECIFIED [Concomitant]
     Route: 055
  14. ALL OTHER THERAPEUTIC PRODUCTS [Concomitant]
  15. ANTI-ASTHMATICS [Concomitant]

REACTIONS (19)
  - ABDOMINAL DISCOMFORT [None]
  - ABDOMINAL DISTENSION [None]
  - ABDOMINAL PAIN UPPER [None]
  - ANXIETY [None]
  - CHEST DISCOMFORT [None]
  - DYSGEUSIA [None]
  - FALL [None]
  - FEELING ABNORMAL [None]
  - FOOD CRAVING [None]
  - GASTRIC DISORDER [None]
  - HUNGER [None]
  - INCREASED APPETITE [None]
  - MALAISE [None]
  - MUSCULOSKELETAL DISCOMFORT [None]
  - NECK PAIN [None]
  - SCREAMING [None]
  - SYNCOPE [None]
  - UNEVALUABLE EVENT [None]
  - WEIGHT INCREASED [None]
